FAERS Safety Report 23167961 (Version 2)
Quarter: 2024Q1

REPORT INFORMATION
  Report Type: Spontaneous
  Country: US (occurrence: US)
  Receive Date: 20231109
  Receipt Date: 20240102
  Transmission Date: 20240410
  Serious: No
  Sender: FDA-Public Use
  Company Number: US-TAIHOP-2023-009013

PATIENT
  Age: 83 Year
  Sex: Male

DRUGS (7)
  1. LONSURF [Suspect]
     Active Substance: TIPIRACIL HYDROCHLORIDE\TRIFLURIDINE
     Indication: Liver disorder
     Dosage: CYCLE 1
     Route: 048
     Dates: start: 202310
  2. LONSURF [Suspect]
     Active Substance: TIPIRACIL HYDROCHLORIDE\TRIFLURIDINE
     Dosage: FORM STRENGTH AND CYCLE UNKNOWN
     Route: 048
  3. CLONIDINE HYDROCHLORIDE [Concomitant]
     Active Substance: CLONIDINE HYDROCHLORIDE
     Indication: Hypertension
  4. LISINOPRIL [Concomitant]
     Active Substance: LISINOPRIL
     Indication: Hypertension
  5. ATORVASTATIN [Concomitant]
     Active Substance: ATORVASTATIN
     Indication: Hypertension
  6. AMLODIPINE BESYLATE [Concomitant]
     Active Substance: AMLODIPINE BESYLATE
     Indication: Hypertension
  7. CLOPIDOGREL [Concomitant]
     Active Substance: CLOPIDOGREL BISULFATE
     Indication: Product used for unknown indication

REACTIONS (6)
  - Product packaging quantity issue [Unknown]
  - Product dose omission in error [Unknown]
  - Therapy interrupted [Unknown]
  - Inappropriate schedule of product administration [Unknown]
  - Arthralgia [Not Recovered/Not Resolved]
  - Off label use [Unknown]
